FAERS Safety Report 4744206-0 (Version None)
Quarter: 2005Q3

REPORT INFORMATION
  Report Type: 
  Country: None (occurrence: None)
  Receive Date: 20050809
  Receipt Date: 20050729
  Transmission Date: 20060218
  Serious: Yes (Death)
  Sender: FDA-Public Use
  Company Number: 200510317BYL

PATIENT
  Age: 88 Year
  Sex: Female
  Weight: 32 kg

DRUGS (10)
  1. CIPRO IV [Suspect]
     Indication: PNEUMONIA
     Dosage: 600 MG, TOTAL DAILY, INTRAVENOUS DRIP
     Route: 042
     Dates: start: 20050206, end: 20050215
  2. CLARITHROMYCIN [Concomitant]
  3. JUVELA NICOTINATE [Concomitant]
  4. DORNER [Concomitant]
  5. GASTER D [Concomitant]
  6. MUCOSOLVAN [Concomitant]
  7. FERRUM ^GREEN CROSS^ [Concomitant]
  8. UNASYN [Concomitant]
  9. FIRSTCIN [Concomitant]
  10. MEROPEN [Concomitant]

REACTIONS (10)
  - ANOREXIA [None]
  - ANTINEUTROPHIL CYTOPLASMIC ANTIBODY INCREASED [None]
  - DEPRESSED LEVEL OF CONSCIOUSNESS [None]
  - HAEMOPTYSIS [None]
  - MALAISE [None]
  - NEPHRITIS [None]
  - OEDEMA PERIPHERAL [None]
  - RENAL FAILURE ACUTE [None]
  - RESPIRATORY DISORDER [None]
  - VASCULITIS [None]
